FAERS Safety Report 20878666 (Version 1)
Quarter: 2022Q2

REPORT INFORMATION
  Report Type: Report from Study
  Country: US (occurrence: US)
  Receive Date: 20220526
  Receipt Date: 20220526
  Transmission Date: 20220721
  Serious: Yes (Other)
  Sender: FDA-Public Use
  Company Number: US-JNJFOC-20220541641

PATIENT
  Age: 50 Year
  Sex: Male

DRUGS (1)
  1. REMICADE [Suspect]
     Active Substance: INFLIXIMAB
     Indication: Product used for unknown indication
     Route: 042
     Dates: start: 20220406, end: 20220414

REACTIONS (4)
  - Tunnel vision [Unknown]
  - Drug hypersensitivity [Recovering/Resolving]
  - Hypotension [Unknown]
  - Vision blurred [Unknown]
